FAERS Safety Report 23069207 (Version 1)
Quarter: 2023Q4

REPORT INFORMATION
  Report Type: Spontaneous
  Country: US (occurrence: None)
  Receive Date: 20231015
  Receipt Date: 20231015
  Transmission Date: 20240110
  Serious: Yes (Life-Threatening, Disabling, Other)
  Sender: FDA-Public Use
  Company Number: None

PATIENT
  Age: 52 Year
  Sex: Female
  Weight: 90 kg

DRUGS (1)
  1. STELARA [Suspect]
     Active Substance: USTEKINUMAB
     Indication: Crohn^s disease
     Dates: start: 20230920, end: 20230920

REACTIONS (11)
  - Headache [None]
  - Chest discomfort [None]
  - Pharyngeal swelling [None]
  - Swollen tongue [None]
  - Vomiting [None]
  - Loss of consciousness [None]
  - Infusion related reaction [None]
  - Fatigue [None]
  - Restless legs syndrome [None]
  - Anaphylactic reaction [None]
  - Throat irritation [None]

NARRATIVE: CASE EVENT DATE: 20230920
